FAERS Safety Report 14092626 (Version 2)
Quarter: 2017Q4

REPORT INFORMATION
  Report Type: Spontaneous
  Country: SE (occurrence: SE)
  Receive Date: 20171016
  Receipt Date: 20171018
  Transmission Date: 20180321
  Serious: Yes (Other)
  Sender: FDA-Public Use
  Company Number: SE-JNJFOC-20171006698

PATIENT
  Age: 88 Year
  Sex: Male

DRUGS (12)
  1. SAMARIN [Concomitant]
     Route: 065
  2. BEHEPAN [Concomitant]
     Active Substance: HYDROXOCOBALAMIN
     Route: 065
  3. OCULENTUM SIMPLEX [Concomitant]
     Route: 065
  4. XARELTO [Suspect]
     Active Substance: RIVAROXABAN
     Indication: ATRIAL FIBRILLATION
     Route: 048
  5. OMEPRAZOLE. [Concomitant]
     Active Substance: OMEPRAZOLE
     Route: 065
  6. SELOKENZOC [Concomitant]
     Active Substance: METOPROLOL SUCCINATE
     Route: 065
  7. IRON [Concomitant]
     Active Substance: IRON
     Route: 065
  8. XARELTO [Suspect]
     Active Substance: RIVAROXABAN
     Indication: ATRIAL FIBRILLATION
     Route: 048
  9. VITAMIN D [Concomitant]
     Active Substance: CHOLECALCIFEROL
     Route: 065
  10. KALCIDON [Concomitant]
     Active Substance: CALCIUM CARBONATE
     Route: 065
  11. ACETYLCYSTEIN AL [Concomitant]
     Route: 065
  12. TAVEGYL [Concomitant]
     Active Substance: CLEMASTINE FUMARATE
     Route: 065

REACTIONS (15)
  - Muscle spasms [Unknown]
  - Incorrect dose administered [Unknown]
  - Visual acuity reduced [Unknown]
  - Blepharitis [Unknown]
  - Bowel movement irregularity [Unknown]
  - Cataract operation [Unknown]
  - Red blood cell sedimentation rate decreased [Unknown]
  - Fatigue [Unknown]
  - Apnoea [Unknown]
  - Urinary tract infection [Unknown]
  - Wrong technique in product usage process [Unknown]
  - Infection [Unknown]
  - Lacrimal disorder [Unknown]
  - Lymphadenopathy [Unknown]
  - Sleep disorder [Unknown]

NARRATIVE: CASE EVENT DATE: 2017
